FAERS Safety Report 15560085 (Version 1)
Quarter: 2018Q4

REPORT INFORMATION
  Report Type: Spontaneous
  Country: GB (occurrence: GB)
  Receive Date: 20181029
  Receipt Date: 20181029
  Transmission Date: 20190205
  Serious: Yes (Disabling, Other)
  Sender: FDA-Public Use
  Company Number: GB-AUROBINDO-AUR-APL-2018-052446

PATIENT
  Age: 4 Decade
  Sex: Male

DRUGS (7)
  1. CLOFAZIMINE [Suspect]
     Active Substance: CLOFAZIMINE
     Indication: MYCOBACTERIUM ABSCESSUS INFECTION
     Dosage: 100 MILLIGRAM, DAILY
     Route: 048
  2. AMIKACIN. [Suspect]
     Active Substance: AMIKACIN
     Indication: MYCOBACTERIUM ABSCESSUS INFECTION
     Dosage: 525 MILLIGRAM, TWO TIMES A DAY
     Route: 042
  3. MINOCYCLINE [Suspect]
     Active Substance: MINOCYCLINE\MINOCYCLINE HYDROCHLORIDE
     Indication: MYCOBACTERIUM ABSCESSUS INFECTION
     Dosage: 100 MILLIGRAM, TWO TIMES A DAY
     Route: 048
  4. AZITHROMYCIN ANHYDROUS. [Suspect]
     Active Substance: AZITHROMYCIN ANHYDROUS
     Indication: MYCOBACTERIUM ABSCESSUS INFECTION
     Dosage: 500 MILLIGRAM, DAILY
     Route: 048
  5. AMIKACIN. [Suspect]
     Active Substance: AMIKACIN
     Dosage: 500 MILLIGRAM, TWO TIMES A DAY (NEBULISED)
     Route: 055
  6. AZITHROMYCIN ANHYDROUS. [Suspect]
     Active Substance: AZITHROMYCIN ANHYDROUS
     Dosage: 250 MILLIGRAM, DAILY
     Route: 048
  7. MOXIFLOXACIN. [Suspect]
     Active Substance: MOXIFLOXACIN
     Indication: MYCOBACTERIUM ABSCESSUS INFECTION
     Dosage: 400 MILLIGRAM, DAILY
     Route: 048

REACTIONS (4)
  - Nausea [Recovered/Resolved]
  - Insomnia [Recovered/Resolved]
  - Acoustic neuroma [Not Recovered/Not Resolved]
  - Ototoxicity [Not Recovered/Not Resolved]
